FAERS Safety Report 19839527 (Version 1)
Quarter: 2021Q3

REPORT INFORMATION
  Report Type: Spontaneous
  Country: US (occurrence: US)
  Receive Date: 20210916
  Receipt Date: 20210916
  Transmission Date: 20211014
  Serious: Yes (Hospitalization, Other)
  Sender: FDA-Public Use
  Company Number: US-LUPIN PHARMACEUTICALS INC.-2021-17367

PATIENT
  Age: 49 Year
  Sex: Male

DRUGS (1)
  1. TRIAMCINOLONE [Suspect]
     Active Substance: TRIAMCINOLONE
     Indication: IMMUNOSUPPRESSANT DRUG THERAPY
     Dosage: UNK, TRIAMCINOLONE INJECTION IN THE RIGHT AND LEFT EYES, 2 MONTHS AND 1 MONTH PRIOR TO PRESENTATION,

REACTIONS (3)
  - Off label use [Unknown]
  - Eye infection syphilitic [Recovering/Resolving]
  - Condition aggravated [Recovering/Resolving]
